FAERS Safety Report 10584915 (Version 3)
Quarter: 2015Q2

REPORT INFORMATION
  Report Type: Spontaneous
  Country: GB (occurrence: GB)
  Receive Date: 20141114
  Receipt Date: 20150520
  Transmission Date: 20150821
  Serious: Yes (Hospitalization)
  Sender: FDA-Public Use
  Company Number: GB-TEVA-521717ISR

PATIENT
  Age: 41 Year
  Sex: Female

DRUGS (7)
  1. ROACTEMRA [Suspect]
     Active Substance: TOCILIZUMAB
     Indication: RHEUMATOID ARTHRITIS
     Dosage: INFUSION
     Route: 042
     Dates: start: 20130619
  2. METHOTREXATE [Suspect]
     Active Substance: METHOTREXATE
     Indication: RHEUMATOID ARTHRITIS
     Route: 048
  3. CELEBREX [Suspect]
     Active Substance: CELECOXIB
     Dosage: 400 MILLIGRAM DAILY;
  4. FOLIC ACID. [Suspect]
     Active Substance: FOLIC ACID
  5. DIHYDROCODEINE [Suspect]
     Active Substance: DIHYDROCODEINE
     Dosage: 30/500 MG, UNKNOWN
  6. IMIGRAN RECOVERY [Suspect]
     Active Substance: SUMATRIPTAN SUCCINATE
     Dosage: INFUSION, AS NECESSARY
  7. PARACETAMOL [Suspect]
     Active Substance: ACETAMINOPHEN

REACTIONS (1)
  - Diverticulitis [Not Recovered/Not Resolved]

NARRATIVE: CASE EVENT DATE: 20140926
